FAERS Safety Report 6252054-8 (Version None)
Quarter: 2009Q2

REPORT INFORMATION
  Report Type: 
  Country: None (occurrence: None)
  Receive Date: 20090630
  Receipt Date: 20080426
  Transmission Date: 20091009
  Serious: Yes (Hospitalization)
  Sender: FDA-Public Use
  Company Number: US-ROCHE-638721

PATIENT
  Sex: Male

DRUGS (13)
  1. ENFUVIRTIDE [Suspect]
     Route: 065
     Dates: start: 20070223, end: 20080814
  2. ZERIT [Concomitant]
     Dates: start: 20061201, end: 20080814
  3. VIREAD [Concomitant]
     Dates: start: 20071207, end: 20080814
  4. EMTRIVA [Concomitant]
     Dates: end: 20080814
  5. NORVIR [Concomitant]
     Dates: end: 20080814
  6. PREZISTA [Concomitant]
     Dates: end: 20080814
  7. ZITHROMAX [Concomitant]
     Dates: end: 20070520
  8. ZITHROMAX [Concomitant]
     Dates: start: 20070101, end: 20080101
  9. FLUCONAZOLE [Concomitant]
     Dates: start: 20070801, end: 20080814
  10. LEVAQUIN [Concomitant]
     Dates: start: 20071019, end: 20080101
  11. DIFLUCAN [Concomitant]
     Dates: end: 20080101
  12. MEPRON [Concomitant]
     Dates: end: 20070101
  13. ZITHROMAX [Concomitant]
     Dates: start: 20070320, end: 20070101

REACTIONS (1)
  - EPIDIDYMITIS [None]
